FAERS Safety Report 4628733-2 (Version None)
Quarter: 2005Q1

REPORT INFORMATION
  Report Type: 
  Country: None (occurrence: None)
  Receive Date: 20050107
  Receipt Date: 20040909
  Transmission Date: 20050727
  Serious: No
  Sender: FDA-Public Use
  Company Number: 234938K04USA

PATIENT
  Age: 39 Year
  Sex: Female

DRUGS (1)
  1. REBIF [Suspect]
     Indication: MULTIPLE SCLEROSIS
     Dates: start: 20040709

REACTIONS (5)
  - INJECTION SITE IRRITATION [None]
  - INJECTION SITE PAIN [None]
  - MALAISE [None]
  - PRURITUS [None]
  - PYREXIA [None]
